FAERS Safety Report 7745297-5 (Version None)
Quarter: 2011Q3

REPORT INFORMATION
  Report Type: 
  Country: None (occurrence: None)
  Receive Date: 20110908
  Receipt Date: 20110830
  Transmission Date: 20111222
  Serious: Yes (Other)
  Sender: FDA-Public Use
  Company Number: 2006US002767

PATIENT
  Age: 61 Year
  Sex: Female
  Weight: 52 kg

DRUGS (7)
  1. AMEVIVE [Suspect]
     Indication: PSORIASIS
     Dosage: 15 MG, WEEKLY, INTRTAMUSCULAR
     Route: 030
     Dates: start: 20030604, end: 20110318
  2. CALCIUM CARBONATE [Concomitant]
  3. PRAVACHOL [Concomitant]
  4. OMEA III (DOCOSAHEXANOIC ACID, TOCOPHERYL ACETATE) [Concomitant]
  5. ASPIRIN [Concomitant]
  6. CENTRUM SILOVER (VITAMINS NOS) [Concomitant]
  7. BONIVA [Concomitant]

REACTIONS (1)
  - SALIVARY GLAND NEOPLASM [None]
